FAERS Safety Report 14751026 (Version 1)
Quarter: 2018Q2

REPORT INFORMATION
  Report Type: Spontaneous
  Country: US (occurrence: US)
  Receive Date: 20180412
  Receipt Date: 20180412
  Transmission Date: 20180711
  Serious: No
  Sender: FDA-Public Use
  Company Number: US-FRESENIUS KABI-FK201804436

PATIENT
  Sex: Female

DRUGS (2)
  1. XYLOCAINE [Suspect]
     Active Substance: LIDOCAINE HYDROCHLORIDE
     Indication: ANAESTHESIA
     Dates: start: 201804, end: 201804
  2. SODIUM BICARBONATE INJECTION, USP 8.4% [Suspect]
     Active Substance: SODIUM BICARBONATE
     Indication: INJECTION SITE PAIN
     Dates: start: 201804, end: 201804

REACTIONS (2)
  - Skin discolouration [Unknown]
  - Skin exfoliation [Unknown]

NARRATIVE: CASE EVENT DATE: 201804
